FAERS Safety Report 4582744-4 (Version None)
Quarter: 2005Q1

REPORT INFORMATION
  Report Type: 
  Country: None (occurrence: None)
  Receive Date: 20050127
  Receipt Date: 20040507
  Transmission Date: 20050727
  Serious: Yes (Hospitalization)
  Sender: FDA-Public Use
  Company Number: 04-05-0650

PATIENT
  Age: 76 Year
  Sex: Male
  Weight: 57.1532 kg

DRUGS (4)
  1. HYDROCHLOROTHIAZIDE TAB [Suspect]
     Indication: HYPERTENSION
     Dosage: 25MG QD ORAL
     Route: 048
     Dates: start: 20010116, end: 20020611
  2. ISOPTIN [Concomitant]
  3. MAVIK [Concomitant]
  4. TARKA [Concomitant]

REACTIONS (1)
  - HYPONATRAEMIA [None]
